FAERS Safety Report 24952966 (Version 1)
Quarter: 2025Q1

REPORT INFORMATION
  Report Type: Spontaneous
  Country: US (occurrence: US)
  Receive Date: 20250211
  Receipt Date: 20250211
  Transmission Date: 20250408
  Serious: No
  Sender: TEVA
  Company Number: US-TEVA-VS-3291473

PATIENT
  Age: 70 Year
  Sex: Male

DRUGS (1)
  1. AUSTEDO XR [Suspect]
     Active Substance: DEUTETRABENAZINE
     Indication: Product used for unknown indication
     Route: 065

REACTIONS (3)
  - Drooling [Unknown]
  - Loss of personal independence in daily activities [Unknown]
  - Tremor [Unknown]
